FAERS Safety Report 5900227-3 (Version None)
Quarter: 2008Q3

REPORT INFORMATION
  Report Type: 
  Country: None (occurrence: None)
  Receive Date: 20080926
  Receipt Date: 20080918
  Transmission Date: 20090109
  Serious: Yes (Death)
  Sender: FDA-Public Use
  Company Number: FR-JNJFOC-20080905440

PATIENT
  Age: 15 Month
  Sex: Female

DRUGS (1)
  1. TOPALGIC [Suspect]
     Indication: ACCIDENTAL DRUG INTAKE BY CHILD
     Route: 048

REACTIONS (2)
  - ACCIDENTAL OVERDOSE [None]
  - SUDDEN DEATH [None]
